FAERS Safety Report 20748702 (Version 1)
Quarter: 2022Q2

REPORT INFORMATION
  Report Type: Spontaneous
  Country: US (occurrence: US)
  Receive Date: 20220426
  Receipt Date: 20220426
  Transmission Date: 20220721
  Serious: Yes (Other)
  Sender: FDA-Public Use
  Company Number: US-SUN PHARMACEUTICAL INDUSTRIES LTD-2022R1-333952

PATIENT
  Age: 70 Year
  Sex: Female

DRUGS (3)
  1. PREDNISONE [Suspect]
     Active Substance: PREDNISONE
     Indication: Idiopathic pulmonary fibrosis
     Dosage: UNK (10MG)
     Route: 048
  2. METHOTREXATE [Suspect]
     Active Substance: METHOTREXATE
     Indication: Idiopathic pulmonary fibrosis
     Dosage: 10 MILLIGRAM, WEEKLY
     Route: 065
  3. OZURDEX [Suspect]
     Active Substance: DEXAMETHASONE
     Indication: Idiopathic pulmonary fibrosis
     Dosage: UNK
     Route: 065

REACTIONS (1)
  - Bacterial endophthalmitis [Recovered/Resolved]
